FAERS Safety Report 7583466-8 (Version None)
Quarter: 2011Q2

REPORT INFORMATION
  Report Type: 
  Country: None (occurrence: None)
  Receive Date: 20110630
  Receipt Date: 20110624
  Transmission Date: 20111010
  Serious: Yes (Death)
  Sender: FDA-Public Use
  Company Number: RU-ROCHE-635084

PATIENT
  Sex: Female
  Weight: 112 kg

DRUGS (8)
  1. TRASTUZUMAB [Suspect]
     Dosage: DATE OF LAST DOSE PRIOR TO SAE: 21 MAY 2009.  FORM REPORTED AS SOLUTION.
     Route: 042
     Dates: start: 20090409, end: 20090528
  2. GENTAMICIN [Concomitant]
     Dates: start: 20090602, end: 20090608
  3. FILGRASTIM [Concomitant]
     Dates: start: 20090528, end: 20090528
  4. ENALAPRIL MALEATE [Concomitant]
     Dates: start: 20050201, end: 20090622
  5. CEFOTAXIM [Concomitant]
     Dates: start: 20080528, end: 20090102
  6. PERTUZUMAB [Suspect]
     Dosage: DOSE BLINDED. FORM REPORTED AS SOLUTION. DATE OF LAST DOSE PRIOR TO SAE: 21 MAY 2009
     Route: 042
     Dates: start: 20090408, end: 20090528
  7. TAXOTERE [Suspect]
     Dosage: DATE OF LAST DOSE PRIOR TO SAE: 21 MAY 2009.  FORM REPORTED AS SOLUTION.
     Route: 042
     Dates: start: 20090409, end: 20090528
  8. MEROPENEM [Concomitant]
     Dates: start: 20090530, end: 20090606

REACTIONS (1)
  - FEBRILE NEUTROPENIA [None]
